FAERS Safety Report 17896762 (Version 2)
Quarter: 2020Q3

REPORT INFORMATION
  Report Type: Spontaneous
  Country: GB (occurrence: GB)
  Receive Date: 20200615
  Receipt Date: 20200812
  Transmission Date: 20201103
  Serious: Yes (Life-Threatening)
  Sender: FDA-Public Use
  Company Number: GB-ALLERGAN-2022966US

PATIENT
  Sex: Female
  Weight: 58 kg

DRUGS (4)
  1. LANSOPRAZOLE. [Concomitant]
     Active Substance: LANSOPRAZOLE
     Indication: ASTHMA
     Dosage: 30 MG, BID
  2. BOTOX [Suspect]
     Active Substance: ONABOTULINUMTOXINA
     Indication: MIGRAINE
     Dosage: 165 UNITS, SINGLE
     Route: 030
     Dates: start: 20200108, end: 20200108
  3. BECLOMETHASONE [Concomitant]
     Active Substance: BECLOMETHASONE
     Indication: ASTHMA
     Dosage: 200 ?G, BID
  4. SUMATRIPTAN. [Concomitant]
     Active Substance: SUMATRIPTAN
     Indication: MIGRAINE
     Dosage: 50 MG

REACTIONS (3)
  - Joint dislocation [Recovered/Resolved]
  - Tenderness [Recovered/Resolved]
  - Dyspnoea [Recovered/Resolved]

NARRATIVE: CASE EVENT DATE: 202001
